FAERS Safety Report 17047957 (Version 1)
Quarter: 2019Q4

REPORT INFORMATION
  Report Type: Spontaneous
  Country: US (occurrence: US)
  Receive Date: 20191119
  Receipt Date: 20191119
  Transmission Date: 20200122
  Serious: Yes (Hospitalization)
  Sender: FDA-Public Use
  Company Number: US-SCA PHARMACEUTICALS-2019SCA00033

PATIENT
  Age: 30 Year
  Sex: Female
  Weight: 81 kg

DRUGS (1)
  1. OXYTOCIN IN 0.9% SODIUM CHLORIDE [Suspect]
     Active Substance: OXYTOCIN
     Indication: LABOUR INDUCTION
     Dosage: MAYBE 100 ML
     Route: 042
     Dates: start: 20191101, end: 20191101

REACTIONS (2)
  - Seizure [Recovered/Resolved]
  - Headache [Unknown]

NARRATIVE: CASE EVENT DATE: 20191101
